FAERS Safety Report 6567313-9 (Version None)
Quarter: 2010Q1

REPORT INFORMATION
  Report Type: 
  Country: None (occurrence: None)
  Receive Date: 20100202
  Receipt Date: 20100120
  Transmission Date: 20100710
  Serious: Yes (Other)
  Sender: FDA-Public Use
  Company Number: PHHY2010CA02522

PATIENT
  Sex: Male

DRUGS (14)
  1. CLOZARIL [Suspect]
     Indication: DELIRIUM
     Dosage: 1 DOSE 12.5 MG
     Route: 048
     Dates: start: 20091216, end: 20100103
  2. LEVAQUIN [Concomitant]
  3. EXELON [Concomitant]
  4. VENTOLIN [Concomitant]
  5. FRAGMIN [Concomitant]
  6. TYLENOL (CAPLET) [Concomitant]
  7. HALDOL [Concomitant]
  8. SYNTHROID [Concomitant]
  9. ALLOPURINOL [Concomitant]
  10. SURFAK [Concomitant]
  11. SENOKOT [Concomitant]
  12. VITAMIN B-12 [Concomitant]
  13. LOPROX [Concomitant]
     Route: 061
  14. KEMADRIN [Concomitant]

REACTIONS (3)
  - DELIRIUM [None]
  - RESPIRATION ABNORMAL [None]
  - SOMNOLENCE [None]
